FAERS Safety Report 4449068-7 (Version None)
Quarter: 2004Q3

REPORT INFORMATION
  Report Type: 
  Country: None (occurrence: None)
  Receive Date: 20040909
  Receipt Date: 20040819
  Transmission Date: 20050211
  Serious: Yes (Hospitalization, Other)
  Sender: FDA-Public Use
  Company Number: USA040876003

PATIENT
  Age: 66 Year
  Sex: Female

DRUGS (1)
  1. HUMATROPE [Suspect]
     Indication: GROWTH HORMONE DEFICIENCY
     Dosage: 0.3 MG/1 DAY
     Dates: start: 20030620

REACTIONS (2)
  - CARCINOMA [None]
  - FULL BLOOD COUNT DECREASED [None]
